FAERS Safety Report 9013342 (Version 1)
Quarter: 2013Q1

REPORT INFORMATION
  Report Type: Spontaneous
  Country: US (occurrence: None)
  Receive Date: 20130107
  Receipt Date: 20130107
  Transmission Date: 20140127
  Serious: Yes (Life-Threatening, Hospitalization, Disabling, Other)
  Sender: FDA-Public Use
  Company Number: None

PATIENT
  Age: 74 Year
  Sex: Female
  Weight: 63.5 kg

DRUGS (2)
  1. SEROQUEL [Suspect]
     Indication: BIPOLAR DISORDER
     Dosage: 300 DAILY PO
     Route: 048
  2. SEROQUEL [Suspect]
     Indication: SLEEP DISORDER
     Dosage: 300 DAILY PO
     Route: 048

REACTIONS (13)
  - Pneumonia [None]
  - Drug prescribing error [None]
  - Extrapyramidal disorder [None]
  - Ataxia [None]
  - Dysarthria [None]
  - Dysphagia [None]
  - Tardive dyskinesia [None]
  - Dysarthria [None]
  - Activities of daily living impaired [None]
  - Abasia [None]
  - Parkinsonism [None]
  - Medication error [None]
  - Incorrect dose administered [None]
